FAERS Safety Report 9781705 (Version 1)
Quarter: 2013Q4

REPORT INFORMATION
  Report Type: Spontaneous
  Country: US (occurrence: US)
  Receive Date: 20131224
  Receipt Date: 20131224
  Transmission Date: 20140711
  Serious: No
  Sender: FDA-Public Use
  Company Number: US-BAYER-2013-156293

PATIENT
  Age: 78 Year
  Sex: Male
  Weight: 90 kg

DRUGS (2)
  1. ALEVE CAPLET [Suspect]
     Indication: SWELLING
     Dosage: 2 DF, UNK
     Route: 048
     Dates: start: 20131219
  2. TAMSULOSIN [Concomitant]

REACTIONS (1)
  - Off label use [None]
